FAERS Safety Report 20744725 (Version 3)
Quarter: 2022Q2

REPORT INFORMATION
  Report Type: Spontaneous
  Country: FR (occurrence: FR)
  Receive Date: 20220425
  Receipt Date: 20220523
  Transmission Date: 20220721
  Serious: Yes (Other)
  Sender: FDA-Public Use
  Company Number: FR-MYLANLABS-2022M1027015

PATIENT
  Age: 19 Year
  Sex: Female
  Weight: 69 kg

DRUGS (8)
  1. ARIPIPRAZOLE [Suspect]
     Active Substance: ARIPIPRAZOLE
     Indication: Psychotic disorder
     Dosage: 10 MG DAILY
     Route: 065
     Dates: start: 2018, end: 201806
  2. ESCITALOPRAM [Concomitant]
     Active Substance: ESCITALOPRAM OXALATE
     Indication: Anxiety
     Dosage: UNK
     Route: 065
  3. ESCITALOPRAM [Concomitant]
     Active Substance: ESCITALOPRAM OXALATE
     Indication: Agitation
  4. OXAZEPAM [Concomitant]
     Active Substance: OXAZEPAM
     Indication: Agitation
     Dosage: UNK
     Route: 065
  5. OXAZEPAM [Concomitant]
     Active Substance: OXAZEPAM
     Indication: Anxiety
  6. LOXAPINE [Concomitant]
     Active Substance: LOXAPINE
     Indication: Behaviour disorder
     Dosage: UNK
     Route: 065
  7. VALPROATE [Concomitant]
     Active Substance: VALPROIC ACID
     Indication: Behaviour disorder
     Dosage: UNK
     Route: 065
  8. OLANZAPINE [Concomitant]
     Active Substance: OLANZAPINE
     Indication: Psychotic disorder
     Dosage: 10 MILLIGRAM DAILY;
     Route: 065

REACTIONS (7)
  - Negativism [Recovered/Resolved]
  - Symptom recurrence [Recovering/Resolving]
  - Psychiatric symptom [Recovering/Resolving]
  - Aggression [Recovered/Resolved]
  - Anxiety [Recovered/Resolved]
  - Product use in unapproved indication [Unknown]
  - Drug ineffective [Recovered/Resolved]

NARRATIVE: CASE EVENT DATE: 20180101
